FAERS Safety Report 8202750-8 (Version None)
Quarter: 2012Q1

REPORT INFORMATION
  Report Type: 
  Country: None (occurrence: None)
  Receive Date: 20120312
  Receipt Date: 20120312
  Transmission Date: 20120608
  Serious: Yes (Other)
  Sender: FDA-Public Use
  Company Number: None

PATIENT
  Age: 29 Year
  Sex: Male
  Weight: 121.1 kg

DRUGS (3)
  1. CIPROFLOXACIN [Suspect]
     Indication: BLADDER DISORDER
     Dosage: 500MG
     Route: 048
     Dates: start: 20120308, end: 20120308
  2. CIPROFLOXACIN [Suspect]
     Indication: URINARY TRACT INFECTION
     Dosage: 500MG
     Route: 048
     Dates: start: 20120308, end: 20120308
  3. CIPROFLOXACIN [Concomitant]
     Dosage: 500MG
     Route: 048
     Dates: start: 20120308, end: 20120308

REACTIONS (2)
  - MOOD ALTERED [None]
  - DEPRESSION [None]
